FAERS Safety Report 10203111 (Version 1)
Quarter: 2014Q2

REPORT INFORMATION
  Report Type: Spontaneous
  Country: BR (occurrence: BR)
  Receive Date: 20140529
  Receipt Date: 20140529
  Transmission Date: 20141212
  Serious: Yes (Other)
  Sender: FDA-Public Use
  Company Number: PHHY2014BR060936

PATIENT
  Age: 40 Year
  Sex: Male
  Weight: 79 kg

DRUGS (5)
  1. ATENOLOL [Suspect]
     Indication: MITRAL VALVE PROLAPSE
     Dosage: 1 DF, QD
     Route: 048
     Dates: start: 201304
  2. ASCARDIL [Suspect]
     Indication: HELMINTHIC INFECTION
     Dosage: 1 DF, UNK
  3. ASCARIDIL [Suspect]
     Dosage: 1 DF, UNK
  4. RIVOTRIL [Concomitant]
     Indication: STRESS
     Dosage: 1 MG, UNK
  5. RIVOTRIL [Concomitant]
     Indication: ANXIETY

REACTIONS (3)
  - Platelet count decreased [Not Recovered/Not Resolved]
  - Malaise [Not Recovered/Not Resolved]
  - Thrombocytopenia [None]
